FAERS Safety Report 23545545 (Version 1)
Quarter: 2024Q1

REPORT INFORMATION
  Report Type: Spontaneous
  Country: US (occurrence: JP)
  Receive Date: 20240220
  Receipt Date: 20240220
  Transmission Date: 20240409
  Serious: Yes (Hospitalization)
  Sender: FDA-Public Use
  Company Number: JP-2024-0014

PATIENT
  Age: 70 Year
  Sex: Male

DRUGS (3)
  1. BENDAMUSTINE HYDROCHLORIDE [Suspect]
     Active Substance: BENDAMUSTINE HYDROCHLORIDE
     Indication: Mantle cell lymphoma
     Dosage: UNK, BR THERAPY
     Route: 042
  2. RITUXIMAB [Suspect]
     Active Substance: RITUXIMAB
     Indication: Mantle cell lymphoma
     Dosage: UNK, BR THERAPY
     Route: 042
  3. RITUXIMAB [Suspect]
     Active Substance: RITUXIMAB
     Dosage: UNK, MAINTENANCE THERAPY
     Route: 042

REACTIONS (1)
  - Coronavirus infection [Not Recovered/Not Resolved]

NARRATIVE: CASE EVENT DATE: 20240101
